FAERS Safety Report 11533704 (Version 1)
Quarter: 2015Q3

REPORT INFORMATION
  Report Type: Spontaneous
  Country: US (occurrence: US)
  Receive Date: 20150921
  Receipt Date: 20150921
  Transmission Date: 20151125
  Serious: No
  Sender: FDA-Public Use
  Company Number: US-SIGMA-TAU US-2015STPI000457

PATIENT
  Sex: Female

DRUGS (2)
  1. MATULANE [Suspect]
     Active Substance: PROCARBAZINE HYDROCHLORIDE
     Indication: BRAIN NEOPLASM MALIGNANT
     Dosage: UNK MG, OTHER
     Dates: start: 20150529, end: 20150708
  2. MATULANE [Suspect]
     Active Substance: PROCARBAZINE HYDROCHLORIDE
     Dosage: 150 MG, QD
     Dates: end: 20150708

REACTIONS (2)
  - Disease progression [Unknown]
  - Drug ineffective [Unknown]
